FAERS Safety Report 8033015-5 (Version None)
Quarter: 2012Q1

REPORT INFORMATION
  Report Type: 
  Country: None (occurrence: None)
  Receive Date: 20120110
  Receipt Date: 20120105
  Transmission Date: 20120608
  Serious: Yes (Other)
  Sender: FDA-Public Use
  Company Number: US-JNJFOC-20120102139

PATIENT
  Sex: Female
  Weight: 54.43 kg

DRUGS (5)
  1. PROTONIX [Concomitant]
     Indication: HYPERCHLORHYDRIA
     Route: 048
     Dates: start: 20071101, end: 20111001
  2. RESTASIS [Concomitant]
     Indication: DRY EYE
     Route: 031
     Dates: start: 20060101
  3. NITROFURANTOIN MACROCRYSTALLINE [Concomitant]
     Indication: ANTIBIOTIC THERAPY
     Route: 048
     Dates: start: 20080101
  4. ELMIRON [Suspect]
     Indication: BLADDER PAIN
     Route: 048
     Dates: start: 20010101
  5. NEXIUM [Concomitant]
     Indication: HYPERCHLORHYDRIA
     Route: 048
     Dates: start: 20070101

REACTIONS (3)
  - UPPER LIMB FRACTURE [None]
  - ALOPECIA [None]
  - ABDOMINAL PAIN UPPER [None]
